FAERS Safety Report 15763889 (Version 1)
Quarter: 2018Q4

REPORT INFORMATION
  Report Type: Spontaneous
  Country: JP (occurrence: JP)
  Receive Date: 20181227
  Receipt Date: 20181227
  Transmission Date: 20190205
  Serious: Yes (Hospitalization, Other)
  Sender: FDA-Public Use
  Company Number: JP-AXELLIA-002151

PATIENT
  Age: 71 Year
  Sex: Male

DRUGS (6)
  1. DAPTOMYCIN. [Suspect]
     Active Substance: DAPTOMYCIN
     Indication: GRAFT INFECTION
  2. LEVOFLOXACIN. [Suspect]
     Active Substance: LEVOFLOXACIN
     Indication: GRAFT INFECTION
     Route: 048
  3. VANCOMYCIN [Suspect]
     Active Substance: VANCOMYCIN
     Indication: GRAFT INFECTION
  4. SULBACTAM [Suspect]
     Active Substance: SULBACTAM
     Indication: GRAFT INFECTION
  5. AMPICILLIN [Suspect]
     Active Substance: AMPICILLIN
     Indication: GRAFT INFECTION
  6. MEROPENEM. [Suspect]
     Active Substance: MEROPENEM
     Indication: GRAFT INFECTION

REACTIONS (2)
  - Staphylococcal infection [Unknown]
  - Drug resistance [Unknown]
